FAERS Safety Report 10291329 (Version 1)
Quarter: 2014Q3

REPORT INFORMATION
  Report Type: Spontaneous
  Country: IT (occurrence: None)
  Receive Date: 20140708
  Receipt Date: 20140708
  Transmission Date: 20150326
  Serious: Yes (Other)
  Sender: FDA-Public Use
  Company Number: 2014070006

PATIENT
  Age: 46 Year
  Sex: Male

DRUGS (1)
  1. MESALAZINE (MESALAZINE) [Suspect]
     Active Substance: MESALAMINE
     Indication: COLITIS ULCERATIVE

REACTIONS (2)
  - Photosensitivity reaction [None]
  - Eczema [None]
